FAERS Safety Report 4528860-4 (Version None)
Quarter: 2004Q4

REPORT INFORMATION
  Report Type: 
  Country: None (occurrence: None)
  Receive Date: 20041216
  Receipt Date: 20041202
  Transmission Date: 20050328
  Serious: Yes (Other)
  Sender: FDA-Public Use
  Company Number: SK-JNJFOC-20041200761

PATIENT
  Age: 64 Year
  Sex: Male

DRUGS (8)
  1. REMICADE [Suspect]
     Indication: RHEUMATOID ARTHRITIS
     Route: 042
  2. MEDROL [Concomitant]
     Route: 049
  3. ARTHROTEC FORTE [Concomitant]
  4. ARTHROTEC FORTE [Concomitant]
     Dosage: DICLOFENAC SODIUM 75MG + MISOPROSTOL 0.2MG (2 TABLETS DAILY)
  5. METHOTREXATE [Concomitant]
     Route: 049
  6. FOLIC ACID [Concomitant]
     Route: 049
  7. NORVASC [Concomitant]
     Dosage: 1 TABLET IN THE MORNING
     Route: 049
  8. CARDURA [Concomitant]
     Dosage: 1 TABLET IN THE MORNING
     Route: 049

REACTIONS (1)
  - DEMYELINATION [None]
